FAERS Safety Report 4642465-6 (Version None)
Quarter: 2005Q2

REPORT INFORMATION
  Report Type: 
  Country: None (occurrence: None)
  Receive Date: 20050422
  Receipt Date: 20050413
  Transmission Date: 20051028
  Serious: Yes (Other)
  Sender: FDA-Public Use
  Company Number: BR-ROCHE-401857

PATIENT
  Age: 15 Year
  Sex: Male

DRUGS (1)
  1. ROACUTAN [Suspect]
     Indication: ACNE
     Dosage: CAPSULE STRENGTH REPORTED AS 10 AND 20 MG CAPSULES.
     Route: 048
     Dates: start: 20041215, end: 20050315

REACTIONS (5)
  - ASTHMA [None]
  - PNEUMONIA [None]
  - RESPIRATORY TRACT INFECTION [None]
  - SKIN PAPILLOMA [None]
  - TONSILLITIS [None]
